FAERS Safety Report 11667428 (Version 1)
Quarter: 2015Q4

REPORT INFORMATION
  Report Type: Spontaneous
  Country: US (occurrence: US)
  Receive Date: 20151027
  Receipt Date: 20151027
  Transmission Date: 20160304
  Serious: No
  Sender: FDA-Public Use
  Company Number: US-ELI_LILLY_AND_COMPANY-US201002006603

PATIENT
  Sex: Female

DRUGS (7)
  1. FORTEO [Suspect]
     Active Substance: TERIPARATIDE
     Dosage: 20 UG, QOD
     Dates: start: 201002
  2. ENAPRIL                            /00574901/ [Concomitant]
  3. FORTEO [Suspect]
     Active Substance: TERIPARATIDE
     Indication: OSTEOPOROSIS
     Dosage: 20 UG, DAILY (1/D)
     Dates: start: 200908, end: 201002
  4. SYNTHROID [Concomitant]
     Active Substance: LEVOTHYROXINE SODIUM
     Dosage: UNK, UNKNOWN
  5. DETROL /01350202/ [Concomitant]
     Dosage: UNK, UNKNOWN
  6. CALCIUM [Concomitant]
     Active Substance: CALCIUM
     Dosage: 12 D/F, UNKNOWN
     Dates: end: 200908
  7. CALCIUM [Concomitant]
     Active Substance: CALCIUM
     Dosage: 1800 D/F, UNKNOWN

REACTIONS (2)
  - Drug prescribing error [Not Recovered/Not Resolved]
  - Blood calcium increased [Unknown]

NARRATIVE: CASE EVENT DATE: 201002
